FAERS Safety Report 15939405 (Version 3)
Quarter: 2019Q2

REPORT INFORMATION
  Report Type: Spontaneous
  Country: US (occurrence: US)
  Receive Date: 20190208
  Receipt Date: 20190410
  Transmission Date: 20190711
  Serious: Yes (Other)
  Sender: FDA-Public Use
  Company Number: US-ASTRAZENECA-2019SE20674

PATIENT
  Age: 67 Year
  Sex: Male

DRUGS (26)
  1. SULFAMETHOXAZOLE [Concomitant]
     Active Substance: SULFAMETHOXAZOLE
  2. CEPHALEXIN. [Concomitant]
     Active Substance: CEPHALEXIN
  3. ROPINIROLE. [Concomitant]
     Active Substance: ROPINIROLE
  4. SINGULAIR [Concomitant]
     Active Substance: MONTELUKAST SODIUM
  5. DECONEX [Concomitant]
     Active Substance: GUAIFENESIN\PHENYLEPHRINE HYDROCHLORIDE
  6. PLAVIX [Concomitant]
     Active Substance: CLOPIDOGREL BISULFATE
  7. ATORVASTATIN CALCIUM. [Concomitant]
     Active Substance: ATORVASTATIN CALCIUM
  8. ALLOPURINOL. [Concomitant]
     Active Substance: ALLOPURINOL
  9. ISOSORBIDE MONONITRATE. [Concomitant]
     Active Substance: ISOSORBIDE MONONITRATE
  10. ALPRAZOLAM. [Concomitant]
     Active Substance: ALPRAZOLAM
  11. NEXIUM [Suspect]
     Active Substance: ESOMEPRAZOLE MAGNESIUM
     Route: 048
     Dates: start: 20150418
  12. NEXIUM [Suspect]
     Active Substance: ESOMEPRAZOLE MAGNESIUM
     Route: 048
     Dates: start: 2014, end: 2017
  13. NEXIUM 24HR [Suspect]
     Active Substance: ESOMEPRAZOLE MAGNESIUM
     Route: 048
     Dates: start: 2014, end: 2015
  14. PANTOPRAZOLE [Suspect]
     Active Substance: PANTOPRAZOLE
     Dosage: 40 MG
     Route: 065
  15. LYRICA [Concomitant]
     Active Substance: PREGABALIN
  16. ATORVASTATIN [Concomitant]
     Active Substance: ATORVASTATIN
  17. FENOFIBRATE. [Concomitant]
     Active Substance: FENOFIBRATE
  18. NEXIUM [Suspect]
     Active Substance: ESOMEPRAZOLE MAGNESIUM
     Route: 048
     Dates: start: 2014, end: 2015
  19. PANTOPRAZOLE [Suspect]
     Active Substance: PANTOPRAZOLE
     Route: 065
     Dates: start: 2014, end: 2017
  20. MUPIROCIN. [Concomitant]
     Active Substance: MUPIROCIN
  21. ROPINIROLE. [Concomitant]
     Active Substance: ROPINIROLE
  22. TRAMADOL HYDROCHLORIDE. [Concomitant]
     Active Substance: TRAMADOL HYDROCHLORIDE
  23. ASPIRIN. [Concomitant]
     Active Substance: ASPIRIN
  24. ALPRAZOLAM. [Concomitant]
     Active Substance: ALPRAZOLAM
  25. ALBUTEROL. [Concomitant]
     Active Substance: ALBUTEROL
  26. FENOFIBRATE. [Concomitant]
     Active Substance: FENOFIBRATE

REACTIONS (2)
  - Nephrogenic anaemia [Unknown]
  - Chronic kidney disease [Not Recovered/Not Resolved]
